FAERS Safety Report 16181352 (Version 1)
Quarter: 2019Q2

REPORT INFORMATION
  Report Type: Spontaneous
  Country: US (occurrence: US)
  Receive Date: 20190410
  Receipt Date: 20190410
  Transmission Date: 20190711
  Serious: Yes (Hospitalization)
  Sender: FDA-Public Use
  Company Number: US-ELI_LILLY_AND_COMPANY-US201904003730

PATIENT
  Sex: Female

DRUGS (1)
  1. FORTEO [Suspect]
     Active Substance: TERIPARATIDE
     Indication: OSTEOPENIA
     Dosage: UNK, UNKNOWN
     Route: 065
     Dates: start: 2016

REACTIONS (7)
  - Weight decreased [Recovered/Resolved]
  - Off label use [Unknown]
  - Incorrect product administration duration [Unknown]
  - Kyphoscoliosis [Unknown]
  - Weight abnormal [Recovered/Resolved]
  - Scoliosis [Unknown]
  - Fall [Unknown]

NARRATIVE: CASE EVENT DATE: 201801
